FAERS Safety Report 10071557 (Version 1)
Quarter: 2014Q2

REPORT INFORMATION
  Report Type: Spontaneous
  Country: US (occurrence: US)
  Receive Date: 20140410
  Receipt Date: 20140410
  Transmission Date: 20141212
  Serious: Yes (Hospitalization, Other)
  Sender: FDA-Public Use
  Company Number: US-RB-065765-14

PATIENT
  Age: 0 None
  Sex: Male

DRUGS (10)
  1. SUBOXONE FILM [Suspect]
     Indication: DRUG DEPENDENCE
     Dosage: SUBOXONE FILM
     Route: 064
     Dates: start: 20130416, end: 201310
  2. GENERIC BUPRENORPHINE [Suspect]
     Indication: DRUG DEPENDENCE
     Route: 064
     Dates: start: 201310, end: 20140117
  3. GENERIC BUPRENORPHINE [Suspect]
     Route: 063
     Dates: start: 20140117, end: 20140119
  4. PRENATAL VITAMINS [Concomitant]
     Indication: NUTRITIONAL SUPPLEMENTATION
     Dosage: 1 TABLET DAILY
     Route: 064
     Dates: start: 201310, end: 20140117
  5. CLONIDINE [Concomitant]
     Indication: HYPERTENSION
     Route: 064
     Dates: start: 20130416, end: 20140117
  6. CLONIDINE [Concomitant]
     Route: 063
     Dates: start: 20140117, end: 20140119
  7. RANITIDINE [Concomitant]
     Indication: GASTROOESOPHAGEAL REFLUX DISEASE
     Dosage: DOSING DETAILS UNKNOWN
     Route: 064
     Dates: start: 20130416, end: 20140117
  8. RANITIDINE [Concomitant]
     Dosage: DOSING DETAILS UNKNOWN
     Route: 063
     Dates: start: 20140117, end: 20140119
  9. NICOTINE [Concomitant]
     Indication: PRODUCT USED FOR UNKNOWN INDICATION
     Dosage: 8 CIGARETTES DAILY
     Route: 064
     Dates: end: 20140117
  10. NICOTINE [Concomitant]
     Dosage: 8 CIGARETTES DAILY
     Route: 063
     Dates: start: 20140117, end: 20140119

REACTIONS (5)
  - Foetal exposure during pregnancy [Recovered/Resolved]
  - Drug withdrawal syndrome neonatal [Recovered/Resolved]
  - Low birth weight baby [Recovered/Resolved]
  - Exposure during breast feeding [Recovered/Resolved]
  - Weight decrease neonatal [Recovered/Resolved]
